FAERS Safety Report 24531486 (Version 1)
Quarter: 2024Q4

REPORT INFORMATION
  Report Type: Report from Study
  Country: US (occurrence: US)
  Receive Date: 20241022
  Receipt Date: 20241022
  Transmission Date: 20250115
  Serious: No
  Sender: ROCHE
  Company Number: US-ROCHE-3532562

PATIENT
  Age: 46 Year
  Sex: Female

DRUGS (10)
  1. PULMOZYME [Suspect]
     Active Substance: DORNASE ALFA
     Indication: Pancreatic failure
     Dosage: NEBULIZE THE CONTENTS OF 1 VIAL(S) TWICE A DAY?STRENGTH: 1MG/ML
     Route: 065
  2. PULMOZYME [Suspect]
     Active Substance: DORNASE ALFA
     Indication: Infective pulmonary exacerbation of cystic fibrosis
  3. LEVALBUTEROL [Concomitant]
     Active Substance: LEVALBUTEROL
  4. TRIKAFTA [Concomitant]
     Active Substance: ELEXACAFTOR\IVACAFTOR\TEZACAFTOR
  5. ZENPEP [Concomitant]
     Active Substance: PANCRELIPASE AMYLASE\PANCRELIPASE LIPASE\PANCRELIPASE PROTEASE
  6. TOBRAMYCIN [Concomitant]
     Active Substance: TOBRAMYCIN\TOBRAMYCIN SULFATE
  7. CAYSTON [Concomitant]
     Active Substance: AZTREONAM
  8. SYMBICORT [Concomitant]
     Active Substance: BUDESONIDE\FORMOTEROL FUMARATE DIHYDRATE
  9. SODIUM CHLORIDE [Concomitant]
     Active Substance: SODIUM CHLORIDE
  10. FLONASE [Concomitant]
     Active Substance: FLUTICASONE PROPIONATE

REACTIONS (2)
  - No adverse event [Unknown]
  - Off label use [Unknown]
